FAERS Safety Report 16238698 (Version 1)
Quarter: 2019Q2

REPORT INFORMATION
  Report Type: Spontaneous
  Country: US (occurrence: US)
  Receive Date: 20190424
  Receipt Date: 20190424
  Transmission Date: 20190711
  Serious: Yes (Disabling)
  Sender: FDA-Public Use
  Company Number: None

PATIENT
  Age: 60 Year
  Sex: Female
  Weight: 85.5 kg

DRUGS (10)
  1. MELOXICAM 15MG TABLETS SUBSTITUTED FOR MOBIC 15MG TABLETS [Suspect]
     Active Substance: MELOXICAM
     Indication: ARTHRITIS
     Dosage: ?          QUANTITY:1 TABLET(S);?
     Route: 048
     Dates: start: 20190205, end: 20190423
  2. MAGNESIUM [Concomitant]
     Active Substance: MAGNESIUM
  3. MELOXICAM 15MG TABLETS SUBSTITUTED FOR MOBIC 15MG TABLETS [Suspect]
     Active Substance: MELOXICAM
     Indication: ARTHRITIS
     Dosage: ?          QUANTITY:1 TABLET(S);?
     Route: 048
     Dates: start: 20190205, end: 20190220
  4. MIRALAX [Concomitant]
     Active Substance: POLYETHYLENE GLYCOL 3350
  5. CALCIUM [Concomitant]
     Active Substance: CALCIUM
  6. FIBERCON [Concomitant]
     Active Substance: CALCIUM POLYCARBOPHIL
  7. VITAMIN D [Concomitant]
     Active Substance: VITAMIN D NOS
  8. COLACE [Concomitant]
     Active Substance: DOCUSATE SODIUM
  9. FISH OIL [Concomitant]
     Active Substance: FISH OIL
  10. VITAMIN B [Concomitant]
     Active Substance: VITAMIN B

REACTIONS (5)
  - Product quality issue [None]
  - Therapeutic product effect incomplete [None]
  - Insurance issue [None]
  - Therapeutic response changed [None]
  - Product substitution issue [None]

NARRATIVE: CASE EVENT DATE: 20190205
